FAERS Safety Report 7216331-6 (Version None)
Quarter: 2011Q1

REPORT INFORMATION
  Report Type: 
  Country: None (occurrence: None)
  Receive Date: 20110107
  Receipt Date: 20110104
  Transmission Date: 20110831
  Serious: Yes (Other)
  Sender: FDA-Public Use
  Company Number: NL-JNJFOC-20101002091

PATIENT
  Sex: Male

DRUGS (5)
  1. TRISPORAL [Suspect]
     Indication: ONYCHOMYCOSIS
     Dosage: (1 IN THE MORNING AND 1 IN THE EVENING)
     Route: 048
  2. ACETIC ACID [Concomitant]
  3. TRISPORAL [Suspect]
     Indication: LICHEN PLANUS
     Dosage: (1 IN THE MORNING AND 1 IN THE EVENING)
     Route: 048
  4. PRILOSEC [Concomitant]
     Route: 065
  5. UNKNOWN MEDICATION [Concomitant]
     Route: 065

REACTIONS (6)
  - ONYCHOMADESIS [None]
  - RENAL DISORDER [None]
  - PARAESTHESIA [None]
  - NAIL DISCOLOURATION [None]
  - NAIL DISORDER [None]
  - HEPATIC CYST [None]
